FAERS Safety Report 10129913 (Version 1)
Quarter: 2014Q2

REPORT INFORMATION
  Report Type: Spontaneous
  Country: US (occurrence: US)
  Receive Date: 20140428
  Receipt Date: 20140428
  Transmission Date: 20141212
  Serious: No
  Sender: FDA-Public Use
  Company Number: US-009507513-1404USA013749

PATIENT
  Sex: Female

DRUGS (3)
  1. EMEND [Suspect]
     Indication: NAUSEA
     Dosage: 125 MG FOR DAY ONE, 80 MG FOR DAYS TWO AND THREE
     Route: 048
  2. EMEND FOR INJECTION [Suspect]
     Dosage: 150 MG IV /ONE SINGLE DOSE
     Route: 042
  3. ANTINEOPLASTIC (UNSPECIFIED) [Concomitant]

REACTIONS (3)
  - Hiccups [Recovered/Resolved]
  - Hiccups [Recovered/Resolved]
  - Off label use [Unknown]
